FAERS Safety Report 5937895-6 (Version None)
Quarter: 2008Q4

REPORT INFORMATION
  Report Type: 
  Country: None (occurrence: None)
  Receive Date: 20081031
  Receipt Date: 20081027
  Transmission Date: 20090506
  Serious: Yes (Hospitalization)
  Sender: FDA-Public Use
  Company Number: US-SANOFI-SYNTHELABO-F03200800113

PATIENT
  Sex: Male
  Weight: 59 kg

DRUGS (5)
  1. LIPITOR [Concomitant]
     Indication: DRUG USE FOR UNKNOWN INDICATION
     Dosage: UNK
     Route: 065
  2. SLEEPING PILLS [Concomitant]
     Indication: DRUG USE FOR UNKNOWN INDICATION
     Dosage: UNK
     Route: 065
  3. DOCETAXEL [Suspect]
     Indication: OESOPHAGEAL ADENOCARCINOMA
     Route: 042
     Dates: start: 20081002, end: 20081002
  4. OXALIPLATIN [Suspect]
     Indication: OESOPHAGEAL ADENOCARCINOMA
     Route: 042
     Dates: start: 20081002, end: 20081002
  5. BEVACIZUMAB [Suspect]
     Indication: OESOPHAGEAL ADENOCARCINOMA
     Route: 042
     Dates: start: 20081002, end: 20081002

REACTIONS (3)
  - INTESTINAL PERFORATION [None]
  - OESOPHAGEAL FISTULA [None]
  - PNEUMONIA [None]
